FAERS Safety Report 10498246 (Version 1)
Quarter: 2014Q4

REPORT INFORMATION
  Report Type: Spontaneous
  Country: GB (occurrence: GB)
  Receive Date: 20141006
  Receipt Date: 20141006
  Transmission Date: 20150528
  Serious: Yes (Life-Threatening)
  Sender: FDA-Public Use
  Company Number: GB-WATSON-2014-21179

PATIENT
  Age: 43 Year
  Sex: Male

DRUGS (12)
  1. LORAZEPAM. [Concomitant]
     Active Substance: LORAZEPAM
     Indication: PRODUCT USED FOR UNKNOWN INDICATION
     Dosage: UNK
     Route: 065
  2. PROCYCLIDINE [Concomitant]
     Active Substance: PROCYCLIDINE
     Indication: PRODUCT USED FOR UNKNOWN INDICATION
     Dosage: UNK
     Route: 065
  3. THIAMINE [Concomitant]
     Active Substance: THIAMINE
     Indication: PRODUCT USED FOR UNKNOWN INDICATION
     Dosage: UNK
     Route: 065
  4. LAMOTRIGINE (UNKNOWN) [Suspect]
     Active Substance: LAMOTRIGINE
     Indication: MOOD SWINGS
     Dosage: 100 MG, BID
     Route: 048
     Dates: start: 20140801, end: 20140905
  5. CHLORPHENAMINE [Concomitant]
     Active Substance: CHLORPHENIRAMINE MALEATE
     Indication: PRURITUS
     Dosage: UNK
     Route: 065
     Dates: end: 20140820
  6. HALOPERIDOL. [Concomitant]
     Active Substance: HALOPERIDOL
     Indication: PRODUCT USED FOR UNKNOWN INDICATION
     Dosage: UNK
     Route: 065
  7. OMEPRAZOLE. [Concomitant]
     Active Substance: OMEPRAZOLE
     Indication: PRODUCT USED FOR UNKNOWN INDICATION
     Dosage: UNK
     Route: 065
  8. PROMAZINE [Concomitant]
     Active Substance: PROMAZINE
     Indication: PRODUCT USED FOR UNKNOWN INDICATION
     Dosage: UNK
     Route: 065
  9. CARBAMAZEPINE. [Concomitant]
     Active Substance: CARBAMAZEPINE
     Indication: PRODUCT USED FOR UNKNOWN INDICATION
     Dosage: UNK
     Route: 065
     Dates: end: 20140820
  10. VITAMIN B COMPLEX                  /00212701/ [Concomitant]
     Indication: PRODUCT USED FOR UNKNOWN INDICATION
     Dosage: UNK
     Route: 065
  11. FULTIUM [Concomitant]
     Indication: PRODUCT USED FOR UNKNOWN INDICATION
     Dosage: UNK
     Route: 065
  12. HALOPERIDOL DECANOATE. [Concomitant]
     Active Substance: HALOPERIDOL DECANOATE
     Indication: PRODUCT USED FOR UNKNOWN INDICATION
     Dosage: UNK
     Route: 065

REACTIONS (7)
  - Periorbital oedema [Recovered/Resolved]
  - Flushing [Unknown]
  - Drug titration error [Unknown]
  - Rash macular [Recovering/Resolving]
  - Rash pruritic [Recovering/Resolving]
  - Throat tightness [Recovered/Resolved]
  - Tremor [Unknown]

NARRATIVE: CASE EVENT DATE: 20140901
